FAERS Safety Report 24639887 (Version 1)
Quarter: 2024Q4

REPORT INFORMATION
  Report Type: Spontaneous
  Country: US (occurrence: US)
  Receive Date: 20241120
  Receipt Date: 20241120
  Transmission Date: 20250115
  Serious: No
  Sender: ALVOGEN
  Company Number: US-ALVOGEN-2024093831

PATIENT

DRUGS (1)
  1. TERIPARATIDE [Suspect]
     Active Substance: TERIPARATIDE
     Indication: Product used for unknown indication
     Dates: start: 202403

REACTIONS (3)
  - Erythema [Unknown]
  - Hyperhidrosis [Unknown]
  - Insomnia [Unknown]

NARRATIVE: CASE EVENT DATE: 20240301
